FAERS Safety Report 18851611 (Version 2)
Quarter: 2021Q1

REPORT INFORMATION
  Report Type: Spontaneous
  Country: GB (occurrence: GB)
  Receive Date: 20210205
  Receipt Date: 20210215
  Transmission Date: 20210420
  Serious: Yes (Other)
  Sender: FDA-Public Use
  Company Number: GB-BAXTER-2021BAX002273

PATIENT
  Age: 27 Year
  Sex: Female
  Weight: 53.52 kg

DRUGS (1)
  1. METRONIDAZOLE 5MG/ML SOLUTION FOR INFUSION [Suspect]
     Active Substance: METRONIDAZOLE
     Indication: ILL-DEFINED DISORDER
     Dosage: 2 GRAM
     Route: 065
     Dates: start: 20210107, end: 20210107

REACTIONS (1)
  - Chromaturia [Not Recovered/Not Resolved]

NARRATIVE: CASE EVENT DATE: 20210107
